FAERS Safety Report 9612087 (Version 3)
Quarter: 2014Q1

REPORT INFORMATION
  Report Type: Spontaneous
  Country: US (occurrence: US)
  Receive Date: 20131010
  Receipt Date: 20140113
  Transmission Date: 20141002
  Serious: Yes (Other)
  Sender: FDA-Public Use
  Company Number: US-ASTELLAS-2013US009771

PATIENT
  Age: 72 Year
  Sex: Female

DRUGS (3)
  1. MYRBETRIQ [Suspect]
     Indication: INCONTINENCE
     Dosage: 25 MG, UID/QD
     Route: 048
     Dates: start: 201308
  2. MYRBETRIQ [Suspect]
     Indication: URGE INCONTINENCE
  3. MYRBETRIQ [Suspect]
     Indication: CYSTITIS INTERSTITIAL

REACTIONS (7)
  - Drug ineffective [Not Recovered/Not Resolved]
  - Off label use [Unknown]
  - Blood pressure increased [Unknown]
  - Nocturia [Unknown]
  - Dry mouth [Unknown]
  - Constipation [Unknown]
  - Dry eye [Unknown]
